FAERS Safety Report 6141611-5 (Version None)
Quarter: 2009Q2

REPORT INFORMATION
  Report Type: 
  Country: None (occurrence: None)
  Receive Date: 20090402
  Receipt Date: 20090327
  Transmission Date: 20091009
  Serious: Yes (Other)
  Sender: FDA-Public Use
  Company Number: B0509481A

PATIENT
  Sex: Female

DRUGS (5)
  1. AUGMENTIN '125' [Suspect]
     Indication: ANTIBIOTIC PROPHYLAXIS
     Route: 048
     Dates: start: 20071228, end: 20080105
  2. LANSOX [Concomitant]
     Dates: start: 20071224, end: 20080111
  3. UNKNOWN [Concomitant]
     Route: 048
     Dates: start: 20071228, end: 20080214
  4. FERROGRAD C [Concomitant]
     Dates: start: 20071228, end: 20080214
  5. CLEXANE [Concomitant]
     Dates: start: 20071228, end: 20080111

REACTIONS (2)
  - LEUKOPENIA [None]
  - NEUTROPENIA [None]
